FAERS Safety Report 18528002 (Version 1)
Quarter: 2020Q4

REPORT INFORMATION
  Report Type: Spontaneous
  Country: US (occurrence: US)
  Receive Date: 20201120
  Receipt Date: 20201120
  Transmission Date: 20210114
  Serious: No
  Sender: FDA-Public Use
  Company Number: US-BIOVITRUM-2020US6276

PATIENT
  Sex: Male
  Weight: 9 kg

DRUGS (3)
  1. SYNAGIS [Suspect]
     Active Substance: PALIVIZUMAB
     Indication: SUPRAVENTRICULAR EXTRASYSTOLES
  2. SYNAGIS [Suspect]
     Active Substance: PALIVIZUMAB
     Indication: MITRAL VALVE INCOMPETENCE
     Route: 030
  3. SYNAGIS [Suspect]
     Active Substance: PALIVIZUMAB
     Indication: BUNDLE BRANCH BLOCK RIGHT

REACTIONS (2)
  - Cardiac disorder [Unknown]
  - Off label use [Unknown]
